FAERS Safety Report 5990144-5 (Version None)
Quarter: 2008Q4

REPORT INFORMATION
  Report Type: 
  Country: None (occurrence: None)
  Receive Date: 20081210
  Receipt Date: 20081007
  Transmission Date: 20090506
  Serious: Yes (Life-Threatening, Hospitalization)
  Sender: FDA-Public Use
  Company Number: DSA_32808_2008

PATIENT
  Age: 76 Year
  Sex: Male

DRUGS (9)
  1. ENALAPRIL MALEATE [Suspect]
     Indication: HYPERTENSION
     Dosage: 5 MG QD, ORAL, 5 MG, BID, ORAL
     Route: 048
     Dates: start: 20080411, end: 20080411
  2. ENALAPRIL MALEATE [Suspect]
     Indication: HYPERTENSION
     Dosage: 5 MG QD, ORAL, 5 MG, BID, ORAL
     Route: 048
     Dates: start: 20080412, end: 20080709
  3. ENALAPRIL MALEATE [Suspect]
     Indication: HYPERTENSION
     Dosage: 5 MG QD, ORAL, 5 MG, BID, ORAL
     Route: 048
     Dates: start: 20080710, end: 20080710
  4. ENALAPRIL MALEATE [Suspect]
     Indication: HYPERTENSION
     Dosage: 5 MG QD, ORAL, 5 MG, BID, ORAL
     Route: 048
     Dates: start: 20080716, end: 20080716
  5. ENALAPRIL MALEATE [Suspect]
     Indication: HYPERTENSION
     Dosage: 5 MG QD, ORAL, 5 MG, BID, ORAL
     Route: 048
     Dates: start: 20080717, end: 20080828
  6. ENALAPRIL MALEATE [Suspect]
     Indication: HYPERTENSION
     Dosage: 5 MG QD, ORAL, 5 MG, BID, ORAL
     Route: 048
     Dates: start: 20080829, end: 20080829
  7. ENALAPRIL MALEATE [Suspect]
     Indication: HYPERTENSION
     Dosage: 5 MG QD, ORAL, 5 MG, BID, ORAL
     Route: 048
     Dates: start: 20080407
  8. ADALAT [Concomitant]
  9. FAMOTIDINE [Concomitant]

REACTIONS (1)
  - INAPPROPRIATE ANTIDIURETIC HORMONE SECRETION [None]
